FAERS Safety Report 11229403 (Version 1)
Quarter: 2015Q2

REPORT INFORMATION
  Report Type: Spontaneous
  Country: CH (occurrence: CH)
  Receive Date: 20150630
  Receipt Date: 20150630
  Transmission Date: 20150821
  Serious: Yes (Death)
  Sender: FDA-Public Use
  Company Number: CH-ELI_LILLY_AND_COMPANY-CH201506009209

PATIENT
  Age: 66 Year
  Sex: Male

DRUGS (8)
  1. ASPIRIN                            /00002701/ [Concomitant]
     Active Substance: ASPIRIN
     Dosage: 100 MG, QD
     Route: 048
  2. ALIMTA [Suspect]
     Active Substance: PEMETREXED DISODIUM
     Dosage: UNK, CYCLICAL
     Route: 065
     Dates: end: 20150526
  3. ALIMTA [Suspect]
     Active Substance: PEMETREXED DISODIUM
     Indication: LUNG ADENOCARCINOMA
     Dosage: UNK UNK, CYCLICAL
     Route: 065
     Dates: start: 201505
  4. CARBOPLATIN ACTAVIS [Suspect]
     Active Substance: CARBOPLATIN
     Dosage: UNK, CYCLICAL
     Route: 065
     Dates: end: 20150529
  5. PLAVIX [Concomitant]
     Active Substance: CLOPIDOGREL BISULFATE
     Dosage: 75 MG, QD
     Route: 048
  6. FLUOXETIN AXAPHARM [Concomitant]
     Dosage: 20 MG, QD
     Route: 048
  7. CARBOPLATIN ACTAVIS [Suspect]
     Active Substance: CARBOPLATIN
     Indication: LUNG ADENOCARCINOMA
     Dosage: UNK UNK, CYCLICAL
     Route: 065
     Dates: start: 201505
  8. PANTOZOL [Concomitant]
     Active Substance: PANTOPRAZOLE SODIUM
     Dosage: 40 MG, QD
     Route: 048

REACTIONS (4)
  - Febrile neutropenia [Fatal]
  - Anaemia [Fatal]
  - Thrombocytopenia [Fatal]
  - Leukopenia [Fatal]

NARRATIVE: CASE EVENT DATE: 20150606
